FAERS Safety Report 5176380-9 (Version None)
Quarter: 2006Q4

REPORT INFORMATION
  Report Type: 
  Country: None (occurrence: None)
  Receive Date: 20061215
  Receipt Date: 20060903
  Transmission Date: 20070319
  Serious: Yes (Hospitalization)
  Sender: FDA-Public Use
  Company Number: US-ROCHE-462035

PATIENT
  Age: 54 Year
  Sex: Male

DRUGS (2)
  1. PEGASYS [Suspect]
     Dosage: ROUTE REPORTED AS ^INJ^.
     Route: 050
     Dates: start: 20060512, end: 20061020
  2. RIBAVIRIN [Suspect]
     Route: 048
     Dates: start: 20060512, end: 20061020

REACTIONS (7)
  - BALANCE DISORDER [None]
  - BLOOD POTASSIUM DECREASED [None]
  - CHEST PAIN [None]
  - DIZZINESS [None]
  - DYSPNOEA [None]
  - HEPATITIS C VIRUS [None]
  - RASH [None]
